FAERS Safety Report 23413043 (Version 2)
Quarter: 2024Q1

REPORT INFORMATION
  Report Type: Spontaneous
  Country: US (occurrence: US)
  Receive Date: 20240117
  Receipt Date: 20240117
  Transmission Date: 20240410
  Serious: No
  Sender: FDA-Public Use
  Company Number: US-NOVOPROD-1129619

PATIENT
  Age: 73 Year
  Sex: Female

DRUGS (2)
  1. OZEMPIC [Suspect]
     Active Substance: SEMAGLUTIDE
     Indication: Type 2 diabetes mellitus
     Dosage: 1 MG
     Route: 058
     Dates: start: 20230808, end: 20230829
  2. OZEMPIC [Suspect]
     Active Substance: SEMAGLUTIDE
     Indication: Type 2 diabetes mellitus
     Dosage: UNK
     Route: 058
     Dates: start: 20230905

REACTIONS (9)
  - Illness [Unknown]
  - Feeding disorder [Unknown]
  - Headache [Recovered/Resolved]
  - Unevaluable event [Unknown]
  - Nausea [Recovered/Resolved]
  - Blood glucose increased [Unknown]
  - Abdominal discomfort [Unknown]
  - Nausea [Unknown]
  - Inappropriate schedule of product administration [Unknown]

NARRATIVE: CASE EVENT DATE: 20230801
